FAERS Safety Report 7647393-X (Version None)
Quarter: 2011Q3

REPORT INFORMATION
  Report Type: 
  Country: None (occurrence: None)
  Receive Date: 20110801
  Receipt Date: 20110720
  Transmission Date: 20111222
  Serious: Yes (Other)
  Sender: FDA-Public Use
  Company Number: AU-AMGEN-AUSSP2011037512

PATIENT
  Age: 69 Year
  Sex: Male

DRUGS (2)
  1. NPLATE [Suspect]
     Dosage: 3 A?G/KG, UNK
  2. NPLATE [Suspect]
     Indication: IDIOPATHIC THROMBOCYTOPENIC PURPURA
     Dosage: 10 A?G/KG, UNK
     Dates: start: 20090101

REACTIONS (2)
  - BONE MARROW RETICULIN FIBROSIS [None]
  - PLATELET COUNT DECREASED [None]
